FAERS Safety Report 5723335-9 (Version None)
Quarter: 2008Q2

REPORT INFORMATION
  Report Type: 
  Country: None (occurrence: None)
  Receive Date: 20080425
  Receipt Date: 20080409
  Transmission Date: 20081010
  Serious: Yes (Other)
  Sender: FDA-Public Use
  Company Number: DSA_31732_2008

PATIENT
  Age: 91 Year
  Sex: Female

DRUGS (4)
  1. ENALAPRIL MALEATE [Suspect]
     Indication: HYPERTENSION
     Dosage: (20 MG QD ORAL)
     Route: 048
  2. MEPIVACAINE HYDROCHLORIDE (MEPIVACAINE HCL) [Suspect]
     Indication: ANAESTHESIA
     Dosage: (DF INTRAVENOUS)
  3. MIDAZOLAM HCL [Suspect]
     Indication: ANAESTHESIA
     Dosage: (DF INTRAVENOUS)
  4. FENTANYL [Suspect]
     Indication: ANAESTHESIA
     Dosage: (DF INTRAVENOUS)

REACTIONS (7)
  - ANAESTHETIC COMPLICATION [None]
  - ANOXIC ENCEPHALOPATHY [None]
  - CEREBRAL ISCHAEMIA [None]
  - DEPRESSED LEVEL OF CONSCIOUSNESS [None]
  - DRUG INTERACTION [None]
  - DYSARTHRIA [None]
  - HYPOTENSION [None]
